FAERS Safety Report 5101984-9 (Version None)
Quarter: 2006Q3

REPORT INFORMATION
  Report Type: 
  Country: None (occurrence: None)
  Receive Date: 20060731
  Receipt Date: 20060511
  Transmission Date: 20061208
  Serious: No
  Sender: FDA-Public Use
  Company Number: 2006PV013672

PATIENT
  Age: 63 Year
  Sex: Male
  Weight: 127.0072 kg

DRUGS (4)
  1. BYETTA [Suspect]
     Indication: DIABETES MELLITUS NON-INSULIN-DEPENDENT
     Dosage: 5 MCG;BID;SC
     Route: 058
     Dates: start: 20060401
  2. LANTUS [Suspect]
     Indication: DIABETES MELLITUS NON-INSULIN-DEPENDENT
     Dosage: 15 UNITS;HS;SC
     Route: 058
     Dates: end: 20060401
  3. GLUCOPHAGE [Concomitant]
  4. NEXIUM [Concomitant]

REACTIONS (10)
  - BLOOD GLUCOSE DECREASED [None]
  - DECREASED APPETITE [None]
  - DYSPEPSIA [None]
  - HYPERHIDROSIS [None]
  - INJECTION SITE HAEMORRHAGE [None]
  - INJECTION SITE PAIN [None]
  - MEDICATION ERROR [None]
  - NAUSEA [None]
  - WEIGHT DECREASED [None]
  - YAWNING [None]
